FAERS Safety Report 10786785 (Version 1)
Quarter: 2015Q1

REPORT INFORMATION
  Report Type: Report from Study
  Country: US (occurrence: US)
  Receive Date: 20150211
  Receipt Date: 20150211
  Transmission Date: 20150721
  Serious: Yes (Other)
  Sender: FDA-Public Use
  Company Number: US-BIOGENIDEC-2015BI012821

PATIENT
  Age: 58 Year
  Sex: Male

DRUGS (7)
  1. AMLODIPINE [Concomitant]
     Active Substance: AMLODIPINE BESYLATE
  2. TECFIDERA [Suspect]
     Active Substance: DIMETHYL FUMARATE
     Indication: MULTIPLE SCLEROSIS
     Route: 048
     Dates: start: 201412
  3. VITAMIN D [Concomitant]
     Active Substance: CHOLECALCIFEROL
  4. GABAPENTIN. [Concomitant]
     Active Substance: GABAPENTIN
  5. INDOMETHACIN. [Concomitant]
     Active Substance: INDOMETHACIN
  6. OXYCODONE [Concomitant]
     Active Substance: OXYCODONE
  7. FLEXERIL [Concomitant]
     Active Substance: CYCLOBENZAPRINE HYDROCHLORIDE

REACTIONS (2)
  - Flushing [Unknown]
  - Spinal fusion surgery [Unknown]

NARRATIVE: CASE EVENT DATE: 201412
